FAERS Safety Report 7428904-6 (Version None)
Quarter: 2011Q2

REPORT INFORMATION
  Report Type: 
  Country: None (occurrence: None)
  Receive Date: 20110421
  Receipt Date: 20110407
  Transmission Date: 20111010
  Serious: Yes (Hospitalization)
  Sender: FDA-Public Use
  Company Number: US-JNJFOC-20110304289

PATIENT
  Sex: Male
  Weight: 78.02 kg

DRUGS (3)
  1. METHOTREXATE [Concomitant]
     Indication: CROHN'S DISEASE
     Dosage: 0.5 CC
  2. REMICADE [Suspect]
     Indication: CROHN'S DISEASE
     Route: 042
  3. REMICADE [Suspect]
     Route: 042

REACTIONS (4)
  - PNEUMONIA [None]
  - RESPIRATORY TRACT INFECTION [None]
  - RENAL FAILURE [None]
  - STREPTOCOCCAL SEPSIS [None]
